FAERS Safety Report 22939726 (Version 4)
Quarter: 2023Q4

REPORT INFORMATION
  Report Type: Report from Study
  Country: CA (occurrence: CA)
  Receive Date: 20230913
  Receipt Date: 20231227
  Transmission Date: 20240109
  Serious: Yes (Other)
  Sender: FDA-Public Use
  Company Number: CA-JNJFOC-20230738715

PATIENT
  Age: 60 Year
  Sex: Female

DRUGS (2)
  1. REMICADE [Suspect]
     Active Substance: INFLIXIMAB
     Indication: Crohn^s disease
     Dosage: EXPIRY DATE- FEB-2026
     Route: 042
     Dates: start: 20230616
  2. REMICADE [Suspect]
     Active Substance: INFLIXIMAB
     Indication: Fabry^s disease

REACTIONS (8)
  - Abdominal pain [Not Recovered/Not Resolved]
  - Nasopharyngitis [Recovered/Resolved]
  - Influenza [Recovered/Resolved]
  - Gastrointestinal inflammation [Recovered/Resolved]
  - Eructation [Unknown]
  - Memory impairment [Not Recovered/Not Resolved]
  - Hypokinesia [Unknown]
  - Myalgia [Not Recovered/Not Resolved]

NARRATIVE: CASE EVENT DATE: 20230101
